FAERS Safety Report 19071039 (Version 1)
Quarter: 2021Q1

REPORT INFORMATION
  Report Type: Spontaneous
  Country: CN (occurrence: CN)
  Receive Date: 20210330
  Receipt Date: 20210330
  Transmission Date: 20210420
  Serious: Yes (Hospitalization, Other)
  Sender: FDA-Public Use
  Company Number: CN-LUPIN PHARMACEUTICALS INC.-2021-03755

PATIENT
  Age: 47 Year
  Sex: Female
  Weight: 60 kg

DRUGS (8)
  1. MOXIFLOXACIN HYDROCHLORIDE/SODIUM CHLORIDE [Concomitant]
     Indication: ANTIBIOTIC THERAPY
     Dosage: 0.4 GRAM, QD
     Route: 065
     Dates: start: 20190103
  2. LEVOFLOXACIN. [Concomitant]
     Active Substance: LEVOFLOXACIN
     Indication: ANTI-INFECTIVE THERAPY
     Dosage: UNK
     Route: 065
     Dates: start: 20190103
  3. OSELTAMIVIR [Concomitant]
     Active Substance: OSELTAMIVIR
     Indication: ANTIVIRAL TREATMENT
     Dosage: UNK
     Route: 065
     Dates: start: 20190103
  4. CEFOPERAZONE SODIUM AND SULBACTAM SODIUM [Concomitant]
     Active Substance: CEFOPERAZONE SODIUM\SULBACTAM SODIUM
     Indication: ANTIBIOTIC THERAPY
     Dosage: 3 GRAM
     Route: 065
     Dates: start: 201901
  5. VORICONAZOLE. [Suspect]
     Active Substance: VORICONAZOLE
     Indication: ASPERGILLUS INFECTION
     Dosage: 0.2 GRAM, BID, INJECTION
     Route: 042
     Dates: end: 201902
  6. VANCOMYCIN HYDROCHLORIDE. [Concomitant]
     Active Substance: VANCOMYCIN HYDROCHLORIDE
     Indication: ANTIBIOTIC THERAPY
     Dosage: 0.5 GRAM
     Dates: start: 201901, end: 201901
  7. VORICONAZOLE. [Suspect]
     Active Substance: VORICONAZOLE
     Indication: ASPERGILLUS INFECTION
     Dosage: 0.4 GRAM, INJECTION
     Route: 042
     Dates: start: 201901
  8. CILASTATIN SODIUM;IMIPENEM [Concomitant]
     Active Substance: CILASTATIN SODIUM\IMIPENEM
     Indication: ANTIBIOTIC THERAPY
     Dosage: 1 GRAM, QID
     Dates: start: 20190103

REACTIONS (2)
  - Epilepsy [Recovered/Resolved]
  - Mental disorder [Recovered/Resolved]

NARRATIVE: CASE EVENT DATE: 201902
